FAERS Safety Report 9963841 (Version 1)
Quarter: 2014Q1

REPORT INFORMATION
  Report Type: Spontaneous
  Country: BR (occurrence: BR)
  Receive Date: 20140305
  Receipt Date: 20140305
  Transmission Date: 20141002
  Serious: Yes (Other)
  Sender: FDA-Public Use
  Company Number: BR-ASTRAZENECA-2014SE13166

PATIENT
  Age: 49 Year
  Sex: Female

DRUGS (2)
  1. ATENOL [Suspect]
     Indication: HYPERTENSION
     Route: 048
     Dates: start: 1994
  2. ATENOL [Suspect]
     Indication: HYPERTENSION
     Route: 048
     Dates: start: 1994

REACTIONS (4)
  - Hypertension [Recovered/Resolved]
  - Drug ineffective [Unknown]
  - Vision blurred [Unknown]
  - Off label use [Not Recovered/Not Resolved]
